FAERS Safety Report 23202387 (Version 3)
Quarter: 2024Q1

REPORT INFORMATION
  Report Type: Spontaneous
  Country: JP (occurrence: JP)
  Receive Date: 20231120
  Receipt Date: 20240103
  Transmission Date: 20240410
  Serious: Yes (Hospitalization)
  Sender: FDA-Public Use
  Company Number: JP-KYOWAKIRIN-2023KK017633

PATIENT
  Age: 97 Year
  Sex: Female

DRUGS (2)
  1. DARBEPOETIN ALFA [Suspect]
     Active Substance: DARBEPOETIN ALFA
     Indication: Nephrogenic anaemia
     Dosage: 60 UG, ONCE EVERY TWO MONTHS
     Route: 042
     Dates: end: 202301
  2. DAPRODUSTAT [Suspect]
     Active Substance: DAPRODUSTAT
     Indication: Nephrogenic anaemia
     Dosage: 1 DF, QD
     Route: 048
     Dates: start: 202301

REACTIONS (3)
  - Hospitalisation [Unknown]
  - Off label use [Recovered/Resolved]
  - Drug ineffective [Unknown]
